FAERS Safety Report 10601573 (Version 10)
Quarter: 2019Q2

REPORT INFORMATION
  Report Type: Report from Study
  Country: CA (occurrence: CA)
  Receive Date: 20141124
  Receipt Date: 20190625
  Transmission Date: 20190711
  Serious: Yes (Hospitalization, Other)
  Sender: FDA-Public Use
  Company Number: CA-INCYTE CORPORATION-2013IN001206

PATIENT

DRUGS (6)
  1. JAKAVI [Suspect]
     Active Substance: RUXOLITINIB
     Dosage: 10 MG, QD
     Route: 048
  2. JAKAVI [Suspect]
     Active Substance: RUXOLITINIB
     Indication: MYELOFIBROSIS
     Dosage: 10 MG, TWICE DAILY (BID)
     Route: 048
     Dates: start: 20130518
  3. JAKAVI [Suspect]
     Active Substance: RUXOLITINIB
     Dosage: 5 MG, BID
     Route: 048
  4. RAMIPRIL. [Concomitant]
     Active Substance: RAMIPRIL
     Indication: PRODUCT USED FOR UNKNOWN INDICATION
     Dosage: UNK
     Route: 065
  5. JAKAVI [Suspect]
     Active Substance: RUXOLITINIB
     Dosage: 10 MG, BID
     Route: 048
  6. EPREX [Concomitant]
     Active Substance: ERYTHROPOIETIN
     Indication: PRODUCT USED FOR UNKNOWN INDICATION
     Dosage: UNK
     Route: 065

REACTIONS (20)
  - Single functional kidney [Unknown]
  - Platelet count decreased [Recovering/Resolving]
  - Spinal pain [Unknown]
  - Rash [Unknown]
  - Constipation [Unknown]
  - Contusion [Unknown]
  - Blood urine present [Unknown]
  - Infection [Unknown]
  - Abdominal pain [Unknown]
  - Lip erythema [Unknown]
  - Pneumonia [Unknown]
  - Renal pain [Unknown]
  - Infrequent bowel movements [Unknown]
  - Oral discomfort [Unknown]
  - Haemoglobin decreased [Recovering/Resolving]
  - Hypotension [Unknown]
  - Cystitis [Recovered/Resolved]
  - Skin atrophy [Unknown]
  - Nephrolithiasis [Recovering/Resolving]
  - Urinary tract infection [Unknown]

NARRATIVE: CASE EVENT DATE: 20151008
